FAERS Safety Report 8501970-2 (Version None)
Quarter: 2012Q3

REPORT INFORMATION
  Report Type: 
  Country: None (occurrence: None)
  Receive Date: 20120711
  Receipt Date: 20120710
  Transmission Date: 20120928
  Serious: Yes (Hospitalization)
  Sender: FDA-Public Use
  Company Number: PHHY2012IT057582

PATIENT
  Sex: Female

DRUGS (5)
  1. OXCARBAZEPINE [Suspect]
     Dosage: 2 DF, DAILY
     Route: 048
     Dates: start: 20120623
  2. LITHIUM CARBONATE [Suspect]
     Indication: SCHIZOAFFECTIVE DISORDER
     Dosage: 2 DF, DAILY
     Route: 048
     Dates: start: 20120623
  3. ZYPREXA [Suspect]
     Indication: SCHIZOAFFECTIVE DISORDER
     Dosage: 2 DF, DAILY
     Route: 048
     Dates: start: 20090101
  4. CANDESARTAN CILEXETIL [Concomitant]
     Dosage: 16 MG, UNK
  5. ASPIRIN [Concomitant]
     Dosage: 100 MG ORALLY AT A DOSE OF TWO POSOLOGICAL UNITS
     Route: 048

REACTIONS (8)
  - TOXICITY TO VARIOUS AGENTS [None]
  - TREMOR [None]
  - THROMBOCYTOSIS [None]
  - DRUG ADMINISTRATION ERROR [None]
  - DIPLOPIA [None]
  - LEUKOCYTOSIS [None]
  - ASTHENIA [None]
  - ELECTROCARDIOGRAM QT PROLONGED [None]
